FAERS Safety Report 5049786-6 (Version None)
Quarter: 2006Q3

REPORT INFORMATION
  Report Type: 
  Country: None (occurrence: None)
  Receive Date: 20060706
  Receipt Date: 20060623
  Transmission Date: 20061208
  Serious: Yes (Other)
  Sender: FDA-Public Use
  Company Number: CHNY2006AR01931

PATIENT
  Sex: Female

DRUGS (1)
  1. NICOTINELL TTS (NCH)(NICOTINE) TRANS-THERAPEUTIC-SYSTEM [Suspect]
     Dosage: 21 MG, QD, TRANSDERMAL
     Route: 062
     Dates: start: 20060616, end: 20060621

REACTIONS (4)
  - DIARRHOEA [None]
  - HAEMATOMA [None]
  - RASH [None]
  - VOMITING [None]
